FAERS Safety Report 4743480-4 (Version None)
Quarter: 2005Q3

REPORT INFORMATION
  Report Type: 
  Country: None (occurrence: None)
  Receive Date: 20050809
  Receipt Date: 20050801
  Transmission Date: 20060218
  Serious: Yes (Death, Hospitalization)
  Sender: FDA-Public Use
  Company Number: HQWYE604421JUN05

PATIENT
  Age: 73 Year
  Sex: Male

DRUGS (11)
  1. AMIODARONE HCL [Suspect]
     Indication: ISCHAEMIC CARDIOMYOPATHY
     Dosage: 200 MG, 5/WEEK, ORAL
     Route: 048
     Dates: end: 20050501
  2. ALPRAZOLAM (ALPROAZOLAM) [Suspect]
     Dosage: ORAL
     Route: 048
     Dates: end: 20050501
  3. AMLODIPINE BESYLATE [Suspect]
     Dosage: 5 MG 1X PER 1 DAY,ORAL
     Route: 048
     Dates: end: 20050501
  4. COMBIVENT [Suspect]
     Indication: CHRONIC OBSTRUCTIVE PULMONARY DISEASE
     Dosage: DOSE/FREQUENCY, INHALATION
     Route: 055
     Dates: end: 20050501
  5. CORVASAL (MOLSIDOMINE, ) [Suspect]
     Indication: ISCHAEMIC CARDIOMYOPATHY
     Dosage: DOSE/FREGUENCY, ORAL
     Route: 048
     Dates: end: 20050501
  6. IMMUCYST [Suspect]
     Indication: BLADDER CANCER
     Dosage: 81 MG 1X P ER 1 WK, ORAL
     Route: 048
     Dates: start: 20050307, end: 20050418
  7. LANSOPRAZOLE [Suspect]
     Dosage: 15 MG 1X PER 1 DAY, ORAL
     Route: 048
     Dates: end: 20050503
  8. PLAVIX [Suspect]
     Indication: ISCHAEMIC CARDIOMYOPATHY
     Dosage: 75 MG 1X PER 1 DAY, ORAL
     Route: 048
     Dates: end: 20050501
  9. SERETIDE (SALMETEROL/FLUTOCASONE, ) [Suspect]
     Indication: CHRONIC OBSTRUCTIVE PULMONARY DISEASE
     Dosage: DOSE/FREGUENCY, INHALATION
     Route: 055
     Dates: end: 20050501
  10. PRAVASTATIN [Suspect]
     Indication: ISCHAEMIC CARDIOMYOPATHY
     Dosage: 20 MG 1X PER 1 DAY, ORAL
     Route: 048
     Dates: end: 20050501
  11. ZOLPIDEM TARTRATE [Suspect]
     Dosage: DOSE/FREGUENCY, ORAL
     Route: 048
     Dates: end: 20050501

REACTIONS (8)
  - BLOOD CREATINE INCREASED [None]
  - GAMMA-GLUTAMYLTRANSFERASE INCREASED [None]
  - HYPOALBUMINAEMIA [None]
  - PNEUMONIA [None]
  - PNEUMONITIS [None]
  - RESPIRATORY FAILURE [None]
  - THERAPEUTIC AGENT TOXICITY [None]
  - VACCINATION COMPLICATION [None]
